FAERS Safety Report 8035866-X (Version None)
Quarter: 2012Q1

REPORT INFORMATION
  Report Type: 
  Country: None (occurrence: None)
  Receive Date: 20120111
  Receipt Date: 20120111
  Transmission Date: 20120608
  Serious: No
  Sender: FDA-Public Use
  Company Number: None

PATIENT
  Age: 58 Year
  Sex: Female
  Weight: 51.709 kg

DRUGS (2)
  1. CLINDAMYCIN [Suspect]
     Indication: PERIODONTAL DISEASE
     Dosage: NOT SURE--250MG?
     Route: 048
     Dates: start: 20111125, end: 20111205
  2. FLAGYL [Concomitant]
     Indication: COLITIS ULCERATIVE
     Dosage: 250 MG
     Route: 048
     Dates: start: 20111216, end: 20111226

REACTIONS (7)
  - DIARRHOEA [None]
  - SKIN EXFOLIATION [None]
  - COLITIS ULCERATIVE [None]
  - ORAL FUNGAL INFECTION [None]
  - CLOSTRIDIUM DIFFICILE COLITIS [None]
  - ABDOMINAL PAIN [None]
  - MUSCLE SPASMS [None]
